FAERS Safety Report 22271184 (Version 4)
Quarter: 2023Q2

REPORT INFORMATION
  Report Type: Report from Study
  Country: HU (occurrence: HU)
  Receive Date: 20230501
  Receipt Date: 20230602
  Transmission Date: 20230721
  Serious: Yes (Death, Life-Threatening)
  Sender: FDA-Public Use
  Company Number: HU-ABBVIE-4746111

PATIENT
  Age: 71 Year
  Sex: Female

DRUGS (12)
  1. PLACEBO [Suspect]
     Active Substance: UNSPECIFIED INGREDIENT
     Indication: Rheumatoid arthritis
     Route: 058
     Dates: start: 20170208, end: 20170502
  2. PLACEBO [Suspect]
     Active Substance: UNSPECIFIED INGREDIENT
     Indication: Rheumatoid arthritis
     Route: 048
     Dates: start: 20170208, end: 20170515
  3. UPADACITINIB [Suspect]
     Active Substance: UPADACITINIB
     Indication: Rheumatoid arthritis
     Route: 048
     Dates: start: 20170516, end: 20230313
  4. BETAXOLOL HYDROCHLORIDE [Concomitant]
     Active Substance: BETAXOLOL HYDROCHLORIDE
     Indication: Hypertension
     Route: 050
     Dates: start: 20160826
  5. COVEREX AS KOMB [Concomitant]
     Indication: Hypertension
     Route: 048
     Dates: start: 20160826
  6. TREXANE [Concomitant]
     Indication: Rheumatoid arthritis
     Route: 050
     Dates: start: 20170410
  7. APO-FAMITODINE [Concomitant]
     Indication: Cholelithiasis
     Route: 048
     Dates: start: 20160815
  8. FLUGALIN [Concomitant]
     Indication: Rheumatoid arthritis
     Route: 048
     Dates: start: 20161230
  9. CALCIUM [Concomitant]
     Active Substance: CALCIUM
     Indication: Osteoporosis
     Route: 048
     Dates: start: 20100901
  10. VITAMIN D3 [Concomitant]
     Active Substance: CHOLECALCIFEROL
     Indication: Osteoporosis prophylaxis
     Dosage: 2000 NE
     Route: 048
     Dates: start: 20100901
  11. ROSUVASTATIN CALCIUM [Concomitant]
     Active Substance: ROSUVASTATIN CALCIUM
     Indication: Hyperlipidaemia
     Route: 048
     Dates: start: 20180514
  12. FOLIC ACID [Concomitant]
     Active Substance: FOLIC ACID
     Indication: Prophylaxis
     Route: 048
     Dates: start: 20201018

REACTIONS (2)
  - Cardiac failure [Fatal]
  - Atypical pneumonia [Unknown]

NARRATIVE: CASE EVENT DATE: 20230314
